FAERS Safety Report 8671969 (Version 3)
Quarter: 2013Q4

REPORT INFORMATION
  Report Type: Spontaneous
  Country: US (occurrence: US)
  Receive Date: 20120718
  Receipt Date: 20131101
  Transmission Date: 20140711
  Serious: No
  Sender: FDA-Public Use
  Company Number: US-009507513-1207USA001542

PATIENT
  Age: 69 Year
  Sex: Female
  Weight: 69.39 kg

DRUGS (4)
  1. AZASITE [Suspect]
     Indication: CONJUNCTIVITIS BACTERIAL
     Dosage: 1 GTT, BID
     Route: 047
     Dates: start: 20120622
  2. WARFARIN [Concomitant]
  3. METOPROLOL [Concomitant]
  4. THYROID [Concomitant]

REACTIONS (4)
  - Eye irritation [Recovered/Resolved]
  - Drug ineffective [Unknown]
  - Product packaging quantity issue [Unknown]
  - Inappropriate schedule of drug administration [Unknown]
